FAERS Safety Report 5185488-3 (Version None)
Quarter: 2006Q4

REPORT INFORMATION
  Report Type: 
  Country: None (occurrence: None)
  Receive Date: 20061220
  Receipt Date: 20060727
  Transmission Date: 20070319
  Serious: No
  Sender: FDA-Public Use
  Company Number: US-GLAXOSMITHKLINE-A0613852A

PATIENT
  Age: 52 Year
  Sex: Female

DRUGS (3)
  1. NICODERM CQ [Suspect]
  2. NICODERM CQ [Suspect]
  3. XANAX [Concomitant]

REACTIONS (7)
  - DRUG WITHDRAWAL SYNDROME [None]
  - IMPATIENCE [None]
  - IRRITABILITY [None]
  - LOGORRHOEA [None]
  - MUSCLE SPASMS [None]
  - NERVOUSNESS [None]
  - PAIN IN EXTREMITY [None]
